FAERS Safety Report 17454914 (Version 2)
Quarter: 2020Q1

REPORT INFORMATION
  Report Type: Report from Study
  Country: CO (occurrence: CO)
  Receive Date: 20200225
  Receipt Date: 20200327
  Transmission Date: 20200409
  Serious: Yes (Hospitalization, Other)
  Sender: FDA-Public Use
  Company Number: CO-SA-2019SA190491

PATIENT
  Age: 32 Year
  Sex: Female

DRUGS (1)
  1. ALEMTUZUMAB [Suspect]
     Active Substance: ALEMTUZUMAB
     Indication: MULTIPLE SCLEROSIS
     Dosage: 12 MG, QD
     Route: 041
     Dates: start: 20190710, end: 20190712

REACTIONS (13)
  - Platelet count decreased [Unknown]
  - Blood creatinine decreased [Recovered/Resolved]
  - Tachycardia [Unknown]
  - Neutrophil count decreased [Recovered/Resolved]
  - Monocyte count decreased [Unknown]
  - Crystal urine present [Unknown]
  - White blood cell count decreased [Unknown]
  - Blood thyroid stimulating hormone decreased [Recovered/Resolved]
  - Haemoglobin decreased [Recovered/Resolved]
  - Haematocrit decreased [Unknown]
  - Lymphocyte count decreased [Unknown]
  - Thrombocytopenia [Unknown]
  - Red blood cell count decreased [Unknown]

NARRATIVE: CASE EVENT DATE: 20190711
